FAERS Safety Report 6789157-5 (Version None)
Quarter: 2010Q2

REPORT INFORMATION
  Report Type: 
  Country: None (occurrence: None)
  Receive Date: 20100623
  Receipt Date: 20080707
  Transmission Date: 20101027
  Serious: No
  Sender: FDA-Public Use
  Company Number: US-PFIZER INC-2008056358

PATIENT
  Sex: Female
  Weight: 70.454 kg

DRUGS (3)
  1. CADUET [Suspect]
     Indication: HYPERTENSION
     Dosage: 5/10MG TDD:5/10MG
     Dates: start: 20071201
  2. CADUET [Suspect]
     Indication: BLOOD CHOLESTEROL INCREASED
  3. SYNTHROID [Concomitant]

REACTIONS (1)
  - INSOMNIA [None]
